FAERS Safety Report 16526496 (Version 1)
Quarter: 2019Q3

REPORT INFORMATION
  Report Type: Spontaneous
  Country: US (occurrence: US)
  Receive Date: 20190703
  Receipt Date: 20190703
  Transmission Date: 20191004
  Serious: No
  Sender: FDA-Public Use
  Company Number: US-ACTELION-A-NJ2018-173872

PATIENT
  Age: 69 Year
  Sex: Female

DRUGS (3)
  1. VENTAVIS [Suspect]
     Active Substance: ILOPROST
     Dosage: 10 ?G/ML, 2 TREATMENTS QD
     Route: 055
     Dates: end: 20180629
  2. VENTAVIS [Suspect]
     Active Substance: ILOPROST
     Indication: PULMONARY ARTERIAL HYPERTENSION
     Dosage: 5 MCG, UNK
     Route: 055
     Dates: start: 20180610
  3. VENTAVIS [Suspect]
     Active Substance: ILOPROST
     Dosage: 2.5 MCG
     Route: 055

REACTIONS (3)
  - Depression [Unknown]
  - Headache [Recovered/Resolved]
  - Frustration tolerance decreased [Unknown]

NARRATIVE: CASE EVENT DATE: 20180610
